FAERS Safety Report 6984837-0 (Version None)
Quarter: 2010Q3

REPORT INFORMATION
  Report Type: 
  Country: None (occurrence: None)
  Receive Date: 20100910
  Receipt Date: 20100907
  Transmission Date: 20110219
  Serious: Yes (Hospitalization)
  Sender: FDA-Public Use
  Company Number: 015128

PATIENT
  Sex: Female
  Weight: 66 kg

DRUGS (11)
  1. CERTOLIZUMAB PEGOL (CERTOLIZUMAB PEGOL) [Suspect]
     Indication: RHEUMATOID ARTHRITIS
     Dosage: (200 MG, NBR OF DOSES RECEIVED: 6 SUBCUTANEOUS)
     Route: 058
     Dates: start: 20100503, end: 20100610
  2. METHOTREXATE [Concomitant]
  3. PREDNISOLON MERCK [Concomitant]
  4. IBUPROFEN [Concomitant]
  5. LEVOTHYROXINE SODIUM [Concomitant]
  6. IDEOS /00944201/ [Concomitant]
  7. TORASEMID [Concomitant]
  8. ASPIRIN [Concomitant]
  9. PANTOPRAZOLE [Concomitant]
  10. DISTIGMINE [Concomitant]
  11. IPRATROPIUM BROMIDE [Concomitant]

REACTIONS (2)
  - HAEMOGLOBIN DECREASED [None]
  - PNEUMONIA [None]
